FAERS Safety Report 18097128 (Version 1)
Quarter: 2020Q3

REPORT INFORMATION
  Report Type: Report from Study
  Country: US (occurrence: US)
  Receive Date: 20200730
  Receipt Date: 20200730
  Transmission Date: 20201103
  Serious: Yes (Hospitalization)
  Sender: FDA-Public Use
  Company Number: US-ACTELION-A-NJ2019-199274

PATIENT
  Sex: Female
  Weight: 135.6 kg

DRUGS (4)
  1. OPSUMIT [Suspect]
     Active Substance: MACITENTAN
     Indication: PULMONARY ARTERIAL HYPERTENSION
     Dosage: 10 MG, QD
     Route: 048
  2. COUMADIN [Concomitant]
     Active Substance: WARFARIN SODIUM
  3. SILDENAFIL CITRATE. [Concomitant]
     Active Substance: SILDENAFIL CITRATE
  4. DILTIAZEM. [Concomitant]
     Active Substance: DILTIAZEM

REACTIONS (10)
  - Blood glucose increased [Unknown]
  - Nausea [Unknown]
  - Headache [Unknown]
  - Secretion discharge [Unknown]
  - Nasal discharge discolouration [Unknown]
  - Vomiting [Unknown]
  - Fatigue [Unknown]
  - Sneezing [Unknown]
  - Palpitations [Unknown]
  - Chest discomfort [Unknown]
